FAERS Safety Report 8773247 (Version 3)
Quarter: 2015Q1

REPORT INFORMATION
  Report Type: Spontaneous
  Country: US (occurrence: US)
  Receive Date: 20120907
  Receipt Date: 20150112
  Transmission Date: 20150721
  Serious: Yes (Hospitalization, Other)
  Sender: FDA-Public Use
  Company Number: US-ROCHE-CID000000002130200

PATIENT
  Sex: Female

DRUGS (1)
  1. AVASTIN [Suspect]
     Active Substance: BEVACIZUMAB
     Indication: AGE-RELATED MACULAR DEGENERATION
     Dosage: 2.5 MG/0.1ML
     Route: 050

REACTIONS (15)
  - Myopia [Unknown]
  - Blindness [Unknown]
  - Dry eye [Unknown]
  - Conjunctivitis [Unknown]
  - Visual acuity reduced [Unknown]
  - Anxiety [Unknown]
  - Optic atrophy [Unknown]
  - Refraction disorder [Unknown]
  - Periorbital cellulitis [Unknown]
  - Endophthalmitis [Unknown]
  - Eye injury [Unknown]
  - Diplopia [Unknown]
  - Visual field defect [Unknown]
  - Vitreous detachment [Unknown]
  - Presbyopia [Unknown]
